FAERS Safety Report 5602788-0 (Version None)
Quarter: 2008Q1

REPORT INFORMATION
  Report Type: 
  Country: None (occurrence: None)
  Receive Date: 20080125
  Receipt Date: 20080111
  Transmission Date: 20080703
  Serious: Yes (Hospitalization)
  Sender: FDA-Public Use
  Company Number: FR-SANOFI-SYNTHELABO-A02200800118

PATIENT
  Sex: Female

DRUGS (9)
  1. PHYLARM [Concomitant]
     Indication: DRUG USE FOR UNKNOWN INDICATION
     Route: 047
  2. COLPOTROPHINE [Concomitant]
     Indication: DRUG USE FOR UNKNOWN INDICATION
     Route: 067
  3. COLPOTROPHINE [Concomitant]
     Route: 067
  4. CACIT D3 [Concomitant]
     Indication: DRUG USE FOR UNKNOWN INDICATION
     Route: 048
     Dates: start: 20071003
  5. LERCAN [Concomitant]
     Indication: DRUG USE FOR UNKNOWN INDICATION
     Route: 048
     Dates: start: 20060101
  6. ATARAX [Concomitant]
     Indication: DRUG USE FOR UNKNOWN INDICATION
     Route: 048
  7. RABEPRAZOLE SODIUM [Suspect]
     Indication: DRUG USE FOR UNKNOWN INDICATION
     Route: 048
     Dates: start: 20071003, end: 20071204
  8. FOSAMAX [Suspect]
     Indication: DRUG USE FOR UNKNOWN INDICATION
     Route: 048
     Dates: start: 20071003, end: 20071204
  9. PLAQUENIL [Suspect]
     Indication: SJOGREN'S SYNDROME
     Route: 048
     Dates: start: 20070401, end: 20071204

REACTIONS (2)
  - RENAL FAILURE ACUTE [None]
  - TUBULOINTERSTITIAL NEPHRITIS [None]
